FAERS Safety Report 17682054 (Version 1)
Quarter: 2020Q2

REPORT INFORMATION
  Report Type: Report from Study
  Country: None (occurrence: US)
  Receive Date: 20200418
  Receipt Date: 20200418
  Transmission Date: 20200714
  Serious: Yes (Other)
  Sender: FDA-Public Use
  Company Number: US-ABBVIE-20P-163-3365444-00

PATIENT
  Age: 87 Year
  Sex: Male

DRUGS (1)
  1. IMBRUVICA [Suspect]
     Active Substance: IBRUTINIB
     Indication: CHRONIC LYMPHOCYTIC LEUKAEMIA
     Route: 048

REACTIONS (11)
  - Hallucination [Unknown]
  - Fall [Unknown]
  - Skin discolouration [Unknown]
  - Pleural effusion [Unknown]
  - Hip fracture [Unknown]
  - Dementia [Unknown]
  - Cardiac disorder [Unknown]
  - Cardiac valve disease [Unknown]
  - Pain [Unknown]
  - Aggression [Not Recovered/Not Resolved]
  - Paranoia [Not Recovered/Not Resolved]

NARRATIVE: CASE EVENT DATE: 202002
